FAERS Safety Report 10989013 (Version 2)
Quarter: 2015Q2

REPORT INFORMATION
  Report Type: Report from Study
  Country: GB (occurrence: GB)
  Receive Date: 20150405
  Receipt Date: 20150416
  Transmission Date: 20150821
  Serious: Yes (Death, Hospitalization)
  Sender: FDA-Public Use
  Company Number: GB-ROCHE-1457846

PATIENT
  Age: 79 Year
  Sex: Male
  Weight: 63 kg

DRUGS (1)
  1. BEVACIZUMAB [Suspect]
     Active Substance: BEVACIZUMAB
     Indication: COLORECTAL CANCER METASTATIC
     Dosage: LAST DOSE PRIOR TO SAE: 22/JUL/2014
     Route: 042
     Dates: start: 20140625, end: 20140901

REACTIONS (3)
  - Disease progression [Fatal]
  - Venous thrombosis [Recovered/Resolved]
  - Proteinuria [Unknown]

NARRATIVE: CASE EVENT DATE: 20140901
